FAERS Safety Report 6568366-4 (Version None)
Quarter: 2010Q1

REPORT INFORMATION
  Report Type: 
  Country: None (occurrence: None)
  Receive Date: 20100203
  Receipt Date: 20100127
  Transmission Date: 20100710
  Serious: Yes (Other)
  Sender: FDA-Public Use
  Company Number: B0630542A

PATIENT
  Sex: Male

DRUGS (1)
  1. NIQUITIN 21MG [Suspect]
     Indication: DRUG USE FOR UNKNOWN INDICATION
     Route: 062

REACTIONS (3)
  - CHEST PAIN [None]
  - NAUSEA [None]
  - PRODUCT QUALITY ISSUE [None]
